FAERS Safety Report 4970028-1 (Version None)
Quarter: 2006Q2

REPORT INFORMATION
  Report Type: 
  Country: None (occurrence: None)
  Receive Date: 20060406
  Receipt Date: 20060322
  Transmission Date: 20061013
  Serious: Yes (Hospitalization)
  Sender: FDA-Public Use
  Company Number: CLOF-10215

PATIENT
  Age: 67 Year
  Sex: Male
  Weight: 73.3 kg

DRUGS (21)
  1. CLOLAR [Suspect]
     Indication: ACUTE MYELOID LEUKAEMIA
     Dosage: 19 MG DAILY IV
     Route: 042
     Dates: start: 20060308, end: 20060310
  2. CLOLAR [Suspect]
     Indication: MYELODYSPLASTIC SYNDROME
     Dosage: 19 MG DAILY IV
     Route: 042
     Dates: start: 20060308, end: 20060310
  3. CLOLAR [Suspect]
     Indication: ACUTE MYELOID LEUKAEMIA
     Dosage: 19 MG DAILY IV
     Route: 042
     Dates: start: 20060315, end: 20060317
  4. CLOLAR [Suspect]
     Indication: MYELODYSPLASTIC SYNDROME
     Dosage: 19 MG DAILY IV
     Route: 042
     Dates: start: 20060315, end: 20060317
  5. CYTOXAN [Suspect]
     Indication: ACUTE MYELOID LEUKAEMIA
     Dosage: 370 MG DAILY IV
     Route: 042
     Dates: start: 20060307, end: 20060308
  6. CYTOXAN [Suspect]
     Indication: MYELODYSPLASTIC SYNDROME
     Dosage: 370 MG DAILY IV
     Route: 042
     Dates: start: 20060307, end: 20060308
  7. CYTOXAN [Suspect]
     Indication: ACUTE MYELOID LEUKAEMIA
     Dosage: 745 MG DAILY IV
     Route: 042
     Dates: start: 20060309, end: 20060310
  8. CYTOXAN [Suspect]
     Indication: MYELODYSPLASTIC SYNDROME
     Dosage: 745 MG DAILY IV
     Route: 042
     Dates: start: 20060309, end: 20060310
  9. CYTOXAN [Suspect]
     Indication: ACUTE MYELOID LEUKAEMIA
     Dosage: 745 MG DAILY IV
     Route: 042
     Dates: start: 20060315, end: 20060317
  10. CYTOXAN [Suspect]
     Indication: MYELODYSPLASTIC SYNDROME
     Dosage: 745 MG DAILY IV
     Route: 042
     Dates: start: 20060315, end: 20060317
  11. CASPOFUNGIN [Concomitant]
  12. COTRIMOXAZOLE [Concomitant]
  13. NORFLOXACIN [Concomitant]
  14. VALACYCLOVIR [Concomitant]
  15. BENADRYL [Concomitant]
  16. COLACE [Concomitant]
  17. DOLASETRON [Concomitant]
  18. MAGNESIUM SULFATE [Concomitant]
  19. OXYCODONE [Concomitant]
  20. SENOKOT [Concomitant]
  21. ACETAMINOPHEN [Concomitant]

REACTIONS (11)
  - ATRIAL FIBRILLATION [None]
  - BACTERAEMIA [None]
  - BACTERIAL INFECTION [None]
  - BLOOD ELECTROLYTES DECREASED [None]
  - BOWEL SOUNDS ABNORMAL [None]
  - CATHETER RELATED INFECTION [None]
  - CATHETER SITE ERYTHEMA [None]
  - CHILLS [None]
  - FEBRILE NEUTROPENIA [None]
  - HEART RATE IRREGULAR [None]
  - TACHYCARDIA [None]
